FAERS Safety Report 5686386-9 (Version None)
Quarter: 2008Q1

REPORT INFORMATION
  Report Type: 
  Country: None (occurrence: None)
  Receive Date: 20080328
  Receipt Date: 20070730
  Transmission Date: 20080703
  Serious: No
  Sender: FDA-Public Use
  Company Number: US-BAYER-US-2007-028404

PATIENT
  Age: 33 Year
  Sex: Female
  Weight: 59 kg

DRUGS (2)
  1. MIRENA [Suspect]
     Indication: CONTRACEPTION
     Route: 011
     Dates: start: 20061201, end: 20070701
  2. M.V.I. [Concomitant]

REACTIONS (2)
  - MENSTRUATION IRREGULAR [None]
  - PROCEDURAL PAIN [None]
